FAERS Safety Report 9012904 (Version 1)
Quarter: 2013Q1

REPORT INFORMATION
  Report Type: Spontaneous
  Country: GB (occurrence: GB)
  Receive Date: 20130114
  Receipt Date: 20130114
  Transmission Date: 20140127
  Serious: Yes (Hospitalization)
  Sender: FDA-Public Use
  Company Number: PHHY2013GB002032

PATIENT
  Age: 69 Year
  Sex: Male

DRUGS (7)
  1. CLINDAMYCIN [Suspect]
     Indication: DIABETIC FOOT
     Route: 048
     Dates: start: 20121221, end: 20121224
  2. NOVORAPID [Concomitant]
  3. LEVEMIR [Concomitant]
  4. ATORVASTATIN [Concomitant]
  5. DIGOXIN [Concomitant]
  6. IRBESARTAN [Concomitant]
  7. WARFARIN [Concomitant]

REACTIONS (4)
  - Hiccups [Recovered/Resolved]
  - Decreased appetite [Recovering/Resolving]
  - Vomiting [Recovering/Resolving]
  - Nausea [Recovering/Resolving]
